FAERS Safety Report 19926335 (Version 11)
Quarter: 2022Q3

REPORT INFORMATION
  Report Type: Report from Study
  Country: MX (occurrence: MX)
  Receive Date: 20211007
  Receipt Date: 20220718
  Transmission Date: 20221027
  Serious: Yes (Disabling, Other)
  Sender: FDA-Public Use
  Company Number: MX-NOVARTISPH-NVSC2020MX218606

PATIENT
  Age: 44 Year
  Sex: Female
  Weight: 63 kg

DRUGS (2)
  1. GILENYA [Suspect]
     Active Substance: FINGOLIMOD HYDROCHLORIDE
     Indication: Multiple sclerosis
     Dosage: 0.5 MG, QD
     Route: 048
     Dates: start: 201903, end: 202201
  2. GILENYA [Suspect]
     Active Substance: FINGOLIMOD HYDROCHLORIDE
     Dosage: 0.5 MG, QD
     Route: 048
     Dates: start: 20220413

REACTIONS (30)
  - Movement disorder [Recovering/Resolving]
  - Discomfort [Recovering/Resolving]
  - Asthenia [Recovering/Resolving]
  - Peripheral swelling [Recovering/Resolving]
  - Anaemia [Not Recovered/Not Resolved]
  - Cyst [Unknown]
  - Gait disturbance [Not Recovered/Not Resolved]
  - Muscular weakness [Recovering/Resolving]
  - Fatigue [Recovering/Resolving]
  - Multiple sclerosis relapse [Recovering/Resolving]
  - Vaginal haemorrhage [Not Recovered/Not Resolved]
  - Leiomyoma [Unknown]
  - Hypoaesthesia [Not Recovered/Not Resolved]
  - Tachycardia [Unknown]
  - Anxiety [Not Recovered/Not Resolved]
  - Swelling [Recovering/Resolving]
  - Paraesthesia [Recovering/Resolving]
  - Somnolence [Unknown]
  - Pain [Unknown]
  - Depressive symptom [Not Recovered/Not Resolved]
  - Tinnitus [Not Recovered/Not Resolved]
  - Sleep disorder [Not Recovered/Not Resolved]
  - Sensitive skin [Not Recovered/Not Resolved]
  - Malaise [Unknown]
  - Dizziness [Not Recovered/Not Resolved]
  - Feeling abnormal [Unknown]
  - Fall [Unknown]
  - Crying [Unknown]
  - Weight decreased [Recovering/Resolving]
  - Drug ineffective [Unknown]

NARRATIVE: CASE EVENT DATE: 20210913
